FAERS Safety Report 17809193 (Version 1)
Quarter: 2020Q2

REPORT INFORMATION
  Report Type: Spontaneous
  Country: GR (occurrence: GR)
  Receive Date: 20200520
  Receipt Date: 20200520
  Transmission Date: 20200714
  Serious: Yes (Death, Other)
  Sender: FDA-Public Use
  Company Number: GR-SA-2018SA333401

PATIENT
  Age: 51 Year
  Sex: Male

DRUGS (2)
  1. ENOXAPARIN SODIUM. [Suspect]
     Active Substance: ENOXAPARIN SODIUM
     Indication: PULMONARY EMBOLISM
     Dosage: UNK
     Route: 065
  2. ENOXAPARIN SODIUM. [Suspect]
     Active Substance: ENOXAPARIN SODIUM
     Indication: DEEP VEIN THROMBOSIS

REACTIONS (7)
  - Acute kidney injury [Unknown]
  - Plasminogen activator inhibitor decreased [Fatal]
  - Sepsis [Not Recovered/Not Resolved]
  - Multiple organ dysfunction syndrome [Fatal]
  - Rhabdomyolysis [Unknown]
  - Disease progression [Unknown]
  - Factor V Leiden mutation [Fatal]
